FAERS Safety Report 17963916 (Version 1)
Quarter: 2020Q2

REPORT INFORMATION
  Report Type: Spontaneous
  Country: GB (occurrence: GB)
  Receive Date: 20200630
  Receipt Date: 20200630
  Transmission Date: 20200714
  Serious: Yes (Hospitalization, Other)
  Sender: FDA-Public Use
  Company Number: GB-PFIZER INC-2020247972

PATIENT
  Age: 78 Year
  Sex: Male

DRUGS (8)
  1. FUROSEMIDE. [Concomitant]
     Active Substance: FUROSEMIDE
  2. DIAZEPAM. [Concomitant]
     Active Substance: DIAZEPAM
     Dosage: THREE TIMES DAILY
  3. TAMSULOSIN [Concomitant]
     Active Substance: TAMSULOSIN
  4. RIVASTIGMINE HYDROGEN TARTRATE [Concomitant]
     Active Substance: RIVASTIGMINE TARTRATE
  5. ACETYLSALICYLIC ACID [Concomitant]
     Active Substance: ASPIRIN
  6. RAMIPRIL. [Concomitant]
     Active Substance: RAMIPRIL
  7. LORAZEPAM. [Suspect]
     Active Substance: LORAZEPAM
     Indication: AGGRESSION
     Dosage: 4 MG, 1X/DAY
     Route: 048
     Dates: start: 20190829, end: 20190904
  8. CITALOPRAM [Concomitant]
     Active Substance: CITALOPRAM HYDROBROMIDE

REACTIONS (6)
  - Sedation complication [Unknown]
  - Hyperhidrosis [Unknown]
  - Anxiety [Unknown]
  - Chest pain [Unknown]
  - Off label use [Unknown]
  - Product use in unapproved indication [Unknown]

NARRATIVE: CASE EVENT DATE: 20190829
